FAERS Safety Report 21082374 (Version 3)
Quarter: 2022Q4

REPORT INFORMATION
  Report Type: Spontaneous
  Country: US (occurrence: US)
  Receive Date: 20220714
  Receipt Date: 20221108
  Transmission Date: 20230112
  Serious: Yes (Life-Threatening, Other)
  Sender: FDA-Public Use
  Company Number: US-009507513-2206USA007092

PATIENT
  Age: 47 Year
  Sex: Female
  Weight: 72 kg

DRUGS (4)
  1. BRIDION [Suspect]
     Active Substance: SUGAMMADEX
     Indication: Neuromuscular blockade reversal
     Dosage: 200 MILLIGRAM, ONCE, PACKAGED: VIAL
     Dates: start: 20220328, end: 20220328
  2. BRIDION [Suspect]
     Active Substance: SUGAMMADEX
     Dosage: 600 MILLIGRAM, ONCE, PACKAGED: VIAL
     Dates: start: 20220328, end: 20220328
  3. BRIDION [Suspect]
     Active Substance: SUGAMMADEX
     Dosage: 200 MILLIGRAM, ONCE, PACKAGED: VIAL
     Dates: start: 20220328, end: 20220328
  4. ROCURONIUM [Suspect]
     Active Substance: ROCURONIUM BROMIDE
     Indication: Neuromuscular blockade
     Dosage: 230 MILLIGRAM, DIVIDED DOSES THROUGHOUT THE COURSE OF THIS
     Route: 042
     Dates: start: 20220328, end: 20220328

REACTIONS (6)
  - Hypoxia [Recovered/Resolved]
  - Upper airway obstruction [Recovered/Resolved]
  - Lethargy [Recovered/Resolved]
  - Intensive care [Unknown]
  - Respiratory distress [Recovered/Resolved]
  - Recurrence of neuromuscular blockade [Recovered/Resolved]

NARRATIVE: CASE EVENT DATE: 20220328
